FAERS Safety Report 15168292 (Version 3)
Quarter: 2018Q3

REPORT INFORMATION
  Report Type: Spontaneous
  Country: IT (occurrence: IT)
  Receive Date: 20180719
  Receipt Date: 20180820
  Transmission Date: 20181010
  Serious: Yes (Hospitalization)
  Sender: FDA-Public Use
  Company Number: PHHY2018IT050584

PATIENT
  Age: 74 Year
  Sex: Male

DRUGS (3)
  1. CEFTRIAXONE. [Suspect]
     Active Substance: CEFTRIAXONE
     Indication: WOUND
     Dosage: 2 G, TOTAL
     Route: 042
     Dates: start: 20180415
  2. CLONIDINE HYDROCHLORIDE. [Suspect]
     Active Substance: CLONIDINE HYDROCHLORIDE
     Indication: WOUND
     Dosage: 150 UG, TOTAL
     Route: 042
     Dates: start: 20180415
  3. DIFTETALL [Suspect]
     Active Substance: DIPHTHERIA AND TETANUS TOXOIDS
     Indication: WOUND
     Dosage: UNK
     Route: 030

REACTIONS (3)
  - Throat irritation [Recovering/Resolving]
  - Cardiac arrest [Recovering/Resolving]
  - Rash [Recovering/Resolving]

NARRATIVE: CASE EVENT DATE: 20180415
